FAERS Safety Report 23102283 (Version 1)
Quarter: 2023Q4

REPORT INFORMATION
  Report Type: Other
  Country: TR (occurrence: TR)
  Receive Date: 20231025
  Receipt Date: 20231025
  Transmission Date: 20240109
  Serious: Yes (Hospitalization, Other)
  Sender: FDA-Public Use
  Company Number: TR-Bion-012248

PATIENT
  Age: 17 Year
  Sex: Male

DRUGS (1)
  1. OXYBUTYNIN CHLORIDE [Suspect]
     Active Substance: OXYBUTYNIN CHLORIDE
     Indication: Euphoric mood
     Dosage: GRADUALLY INCREASED THE DOSE TO 75 - 100MG DAILY

REACTIONS (5)
  - Drug dependence [Unknown]
  - Hallucination, visual [Unknown]
  - Hallucination [Unknown]
  - Drug abuse [Unknown]
  - Loss of consciousness [Unknown]
